FAERS Safety Report 11156212 (Version 2)
Quarter: 2015Q2

REPORT INFORMATION
  Report Type: Spontaneous
  Country: ES (occurrence: ES)
  Receive Date: 20150602
  Receipt Date: 20150608
  Transmission Date: 20150821
  Serious: No
  Sender: FDA-Public Use
  Company Number: ES-AMGEN-ESPSP2015051722

PATIENT
  Age: 47 Year
  Sex: Female

DRUGS (7)
  1. GABAPENTIN. [Concomitant]
     Active Substance: GABAPENTIN
     Dosage: 600 MG, Q8H
     Route: 048
  2. DICLOFENAC [Concomitant]
     Active Substance: DICLOFENAC
     Indication: PAIN
  3. TERIPARATIDE [Concomitant]
     Active Substance: TERIPARATIDE
     Indication: OSTEOGENESIS IMPERFECTA
     Dosage: 20 MUG, QD
     Route: 058
     Dates: start: 201103
  4. TRAMADOL [Concomitant]
     Active Substance: TRAMADOL
     Indication: PAIN
  5. CALCIUM [Concomitant]
     Active Substance: CALCIUM
     Indication: OSTEOGENESIS IMPERFECTA
     Dosage: 1000 MG, QD
     Dates: start: 201101
  6. PROLIA [Suspect]
     Active Substance: DENOSUMAB
     Indication: OSTEOPOROSIS
     Dosage: 60 MG, Q6MO
     Route: 065
     Dates: start: 201303
  7. VITAMIN D                          /00107901/ [Concomitant]
     Active Substance: ERGOCALCIFEROL
     Indication: OSTEOGENESIS IMPERFECTA
     Dosage: 800 IU, QD
     Dates: start: 201101

REACTIONS (1)
  - Off label use [Unknown]
